FAERS Safety Report 7032743-8 (Version None)
Quarter: 2010Q4

REPORT INFORMATION
  Report Type: 
  Country: None (occurrence: None)
  Receive Date: 20101007
  Receipt Date: 20100929
  Transmission Date: 20110411
  Serious: Yes (Other)
  Sender: FDA-Public Use
  Company Number: US-PFIZER INC-2010124269

PATIENT
  Sex: Male

DRUGS (1)
  1. CHANTIX [Suspect]
     Indication: SMOKING CESSATION THERAPY
     Dosage: UNK
     Route: 048
     Dates: start: 20080901, end: 20081201

REACTIONS (6)
  - AGGRESSION [None]
  - ANXIETY [None]
  - MENTAL DISORDER [None]
  - MULTIPLE INJURIES [None]
  - PANIC ATTACK [None]
  - SUICIDE ATTEMPT [None]
